FAERS Safety Report 12225166 (Version 1)
Quarter: 2016Q1

REPORT INFORMATION
  Report Type: Spontaneous
  Country: US (occurrence: None)
  Receive Date: 20160330
  Receipt Date: 20160330
  Transmission Date: 20160526
  Serious: Yes (Death)
  Sender: FDA-Public Use
  Company Number: None

PATIENT
  Age: 73 Year
  Sex: Male
  Weight: 93.9 kg

DRUGS (1)
  1. ACETAMINOPHEN. [Suspect]
     Active Substance: ACETAMINOPHEN
     Indication: PAIN
     Route: 048
     Dates: start: 20080508, end: 20151112

REACTIONS (5)
  - Acute hepatic failure [None]
  - Asthenia [None]
  - International normalised ratio abnormal [None]
  - Hepatorenal syndrome [None]
  - Decreased appetite [None]

NARRATIVE: CASE EVENT DATE: 20151112
